FAERS Safety Report 15548289 (Version 3)
Quarter: 2018Q4

REPORT INFORMATION
  Report Type: Spontaneous
  Country: US (occurrence: US)
  Receive Date: 20181024
  Receipt Date: 20181227
  Transmission Date: 20190205
  Serious: No
  Sender: FDA-Public Use
  Company Number: US-JNJFOC-20181012754

PATIENT
  Age: 27 Year
  Sex: Male
  Weight: 54.43 kg

DRUGS (1)
  1. REMICADE [Suspect]
     Active Substance: INFLIXIMAB
     Indication: CROHN^S DISEASE
     Dosage: DOSE ALSO REPORTED AS 5 MG/KG
     Route: 042
     Dates: start: 20180709

REACTIONS (3)
  - Product use issue [Unknown]
  - Psoriasis [Recovering/Resolving]
  - Off label use [Unknown]

NARRATIVE: CASE EVENT DATE: 201811
